FAERS Safety Report 23994145 (Version 1)
Quarter: 2024Q2

REPORT INFORMATION
  Report Type: Spontaneous
  Country: US (occurrence: None)
  Receive Date: 20240618
  Receipt Date: 20240618
  Transmission Date: 20240716
  Serious: Yes (Hospitalization)
  Sender: FDA-Public Use
  Company Number: None

PATIENT
  Age: 20 Year
  Sex: Female
  Weight: 60.7 kg

DRUGS (1)
  1. CALASPARGASE PEGOL [Suspect]
     Active Substance: CALASPARGASE PEGOL
     Indication: Acute lymphocytic leukaemia
     Dosage: FREQUENCY : ONCE;?
     Route: 042

REACTIONS (12)
  - Malaise [None]
  - Hypersensitivity [None]
  - Cough [None]
  - Nausea [None]
  - Chest discomfort [None]
  - Flushing [None]
  - Abdominal pain [None]
  - Tremor [None]
  - Chills [None]
  - Pallor [None]
  - Blood pressure immeasurable [None]
  - Emotional distress [None]

NARRATIVE: CASE EVENT DATE: 20230520
